FAERS Safety Report 7832932-6 (Version None)
Quarter: 2011Q4

REPORT INFORMATION
  Report Type: 
  Country: None (occurrence: None)
  Receive Date: 20111024
  Receipt Date: 20111018
  Transmission Date: 20120403
  Serious: Yes (Other)
  Sender: FDA-Public Use
  Company Number: CA-PFIZER INC-2011250251

PATIENT
  Age: 63 Year
  Sex: Male

DRUGS (1)
  1. XALATAN [Suspect]
     Indication: GLAUCOMA
     Dosage: 1 GTT, 1X/DAY IN BOTH EYES
     Route: 047

REACTIONS (2)
  - INTRAOCULAR PRESSURE INCREASED [None]
  - EYE LASER SURGERY [None]
